FAERS Safety Report 22339878 (Version 2)
Quarter: 2023Q2

REPORT INFORMATION
  Report Type: Spontaneous
  Country: GB (occurrence: GB)
  Receive Date: 20230518
  Receipt Date: 20230622
  Transmission Date: 20230722
  Serious: Yes (Hospitalization, Other)
  Sender: FDA-Public Use
  Company Number: GB-MYLANLABS-2023M1050347

PATIENT
  Age: 42 Year
  Sex: Female

DRUGS (2)
  1. CLOZARIL [Suspect]
     Active Substance: CLOZAPINE
     Indication: Schizophrenia
     Dosage: UNK (STOP DATE: AROUND 24-APR-2023)
     Route: 048
     Dates: start: 20201008, end: 202304
  2. CLOZARIL [Suspect]
     Active Substance: CLOZAPINE
     Dosage: UNK (TOOK A DOSE OF 425MG CLOZAPINE ON 12-JUN-2023)
     Route: 048
     Dates: end: 20230612

REACTIONS (3)
  - Schizophrenia [Unknown]
  - Mental disorder [Unknown]
  - Therapy interrupted [Unknown]

NARRATIVE: CASE EVENT DATE: 20230401
